FAERS Safety Report 24885328 (Version 1)
Quarter: 2025Q1

REPORT INFORMATION
  Report Type: Spontaneous
  Country: JP (occurrence: JP)
  Receive Date: 20250124
  Receipt Date: 20250124
  Transmission Date: 20250408
  Serious: Yes (Death)
  Sender: EISAI
  Company Number: JP-Eisai-202413761_HAL_P_1

PATIENT
  Age: 63 Year
  Sex: Female

DRUGS (1)
  1. ERIBULIN [Suspect]
     Active Substance: ERIBULIN
     Indication: Breast cancer
     Route: 041

REACTIONS (2)
  - Bacillus infection [Fatal]
  - Pneumonia necrotising [Fatal]
